FAERS Safety Report 16068410 (Version 1)
Quarter: 2019Q1

REPORT INFORMATION
  Report Type: Report from Study
  Country: US (occurrence: US)
  Receive Date: 20190313
  Receipt Date: 20190313
  Transmission Date: 20190418
  Serious: Yes (Death, Hospitalization)
  Sender: FDA-Public Use
  Company Number: US-ACTELION-A-NJ2018-180685

PATIENT
  Sex: Male
  Weight: 164.63 kg

DRUGS (2)
  1. OPSUMIT [Suspect]
     Active Substance: MACITENTAN
     Indication: PULMONARY ARTERIAL HYPERTENSION
     Dosage: 10 MG, QD
     Route: 048
  2. AMLODIPINE [Concomitant]
     Active Substance: AMLODIPINE BESYLATE

REACTIONS (6)
  - Rhinorrhoea [Unknown]
  - Nasopharyngitis [Unknown]
  - Nasal congestion [Unknown]
  - Myocardial infarction [Fatal]
  - International normalised ratio increased [Unknown]
  - Influenza [Unknown]
